FAERS Safety Report 7224590 (Version 2)
Quarter: 2014Q2

REPORT INFORMATION
  Report Type: Spontaneous
  Country: None (occurrence: None)
  Receive Date: 20091203
  Receipt Date: 20140416
  Transmission Date: 20141212
  Serious: Yes (Hospitalization, Other)
  Sender: FDA-Public Use
  Company Number: AUR-APL-2009-01311

PATIENT
  Age: 21 Year
  Sex: Male

DRUGS (1)
  1. TOPIRAMATE [Suspect]
     Indication: SUICIDE ATTEMPT
     Dosage: 40TABS, ONE TIME, ORAL
     Route: 048

REACTIONS (17)
  - Confusional state [None]
  - Urinary incontinence [None]
  - Generalised tonic-clonic seizure [None]
  - Somnolence [None]
  - Disorientation [None]
  - Unresponsive to stimuli [None]
  - Status epilepticus [None]
  - Treatment noncompliance [None]
  - Suicide attempt [None]
  - Overdose [None]
  - Aggression [None]
  - Memory impairment [None]
  - Aphasia [None]
  - Nystagmus [None]
  - Cognitive disorder [None]
  - Toxicity to various agents [None]
  - Blood creatine phosphokinase increased [None]
